FAERS Safety Report 5611057-4 (Version None)
Quarter: 2008Q1

REPORT INFORMATION
  Report Type: 
  Country: None (occurrence: None)
  Receive Date: 20080201
  Receipt Date: 20080121
  Transmission Date: 20080703
  Serious: Yes (Hospitalization)
  Sender: FDA-Public Use
  Company Number: FR-WYE-H02291808

PATIENT
  Age: 73 Year
  Sex: Male

DRUGS (8)
  1. INIPOMP [Suspect]
     Dosage: 40 MG (FREQUENCY UNSPECIFIED)
     Route: 048
     Dates: start: 20071012, end: 20071018
  2. MIOREL [Suspect]
     Indication: BACK PAIN
     Dosage: 4 MG (FREQUENCY UNSPEICIFIED)
     Route: 048
     Dates: start: 20071012, end: 20071101
  3. MIOREL [Suspect]
     Indication: SCIATICA
  4. DI-ANTALVIC [Suspect]
     Indication: BACK PAIN
     Dosage: ^DF^
     Route: 048
     Dates: start: 20071012, end: 20071101
  5. DI-ANTALVIC [Suspect]
     Indication: SCIATICA
  6. DILTIAZEM HCL [Suspect]
     Indication: ESSENTIAL HYPERTENSION
     Dosage: 300 MG (FREQUENCY UNSPECIFIED)
     Route: 048
     Dates: start: 20071012, end: 20071101
  7. BREXIN ^EURO-LABOR^ [Suspect]
     Indication: BACK PAIN
     Dosage: ^DF^
     Route: 048
     Dates: start: 20071012, end: 20071018
  8. BREXIN ^EURO-LABOR^ [Suspect]
     Indication: SCIATICA

REACTIONS (2)
  - CHOLESTASIS [None]
  - DRUG RASH WITH EOSINOPHILIA AND SYSTEMIC SYMPTOMS [None]
